FAERS Safety Report 5261221-1 (Version None)
Quarter: 2007Q1

REPORT INFORMATION
  Report Type: 
  Country: None (occurrence: None)
  Receive Date: 20070309
  Receipt Date: 20070226
  Transmission Date: 20070707
  Serious: Yes (Other)
  Sender: FDA-Public Use
  Company Number: US-PFIZER INC-2007015878

PATIENT
  Sex: Male
  Weight: 124.7 kg

DRUGS (14)
  1. LYRICA [Suspect]
     Indication: DIABETIC NEUROPATHY
  2. LYRICA [Suspect]
     Indication: RESTLESS LEGS SYNDROME
  3. LYRICA [Suspect]
     Indication: HYPOAESTHESIA
  4. LYRICA [Suspect]
     Indication: PARAESTHESIA
  5. LYRICA [Suspect]
     Indication: PAIN
  6. ACTOS [Concomitant]
  7. GLUCOVANCE [Concomitant]
     Indication: DIABETES MELLITUS NON-INSULIN-DEPENDENT
  8. LIPITOR [Concomitant]
     Indication: BLOOD CHOLESTEROL INCREASED
  9. FUROSEMIDE [Concomitant]
     Indication: SWELLING
  10. FUROSEMIDE [Concomitant]
     Indication: FLUID RETENTION
  11. HYDROCHLOROTHIAZIDE [Concomitant]
     Indication: SWELLING
  12. HYDROCHLOROTHIAZIDE [Concomitant]
     Indication: FLUID RETENTION
  13. LISINOPRIL [Concomitant]
     Indication: HYPERTENSION
  14. CENTRUM SILVER [Concomitant]

REACTIONS (2)
  - HYPERTENSION [None]
  - VISION BLURRED [None]
